FAERS Safety Report 5738425-4 (Version None)
Quarter: 2008Q2

REPORT INFORMATION
  Report Type: 
  Country: None (occurrence: None)
  Receive Date: 20080513
  Receipt Date: 20080430
  Transmission Date: 20081010
  Serious: Yes (Hospitalization)
  Sender: FDA-Public Use
  Company Number: AZAUS200800113

PATIENT
  Age: 75 Year
  Sex: Male
  Weight: 99 kg

DRUGS (10)
  1. VIDAZA (AZACITIDE) (INJECTION) [Suspect]
     Indication: MYELODYSPLASTIC SYNDROME
     Dosage: 75 MG/M2, DAILY X 5,SUBCUTANEOUS
     Route: 058
     Dates: start: 20080218, end: 20080222
  2. OXYCODONE HCL [Concomitant]
  3. CARTIA XT [Concomitant]
  4. HYDRALAZINE HCL [Concomitant]
  5. ANAGRELIDE HCL [Concomitant]
  6. LASIX [Concomitant]
  7. COUMADIN [Concomitant]
  8. POTASSIUM (POTASSIUM) [Concomitant]
  9. VITAMIN B12 [Concomitant]
  10. VITAMIN B6 [Concomitant]

REACTIONS (7)
  - CARDIAC FAILURE CONGESTIVE [None]
  - DISEASE PROGRESSION [None]
  - HILAR LYMPHADENOPATHY [None]
  - LYMPHADENOPATHY MEDIASTINAL [None]
  - PHARYNGITIS STREPTOCOCCAL [None]
  - PROTHROMBIN TIME PROLONGED [None]
  - PULMONARY EMBOLISM [None]
